FAERS Safety Report 9431797 (Version 2)
Quarter: 2013Q4

REPORT INFORMATION
  Report Type: Spontaneous
  Country: US (occurrence: None)
  Receive Date: 20130726
  Receipt Date: 20131205
  Transmission Date: 20140711
  Serious: Yes (Hospitalization, Other)
  Sender: FDA-Public Use
  Company Number: 2013US002005

PATIENT
  Age: 65 Year
  Sex: Female
  Weight: 91 kg

DRUGS (5)
  1. ICLUSIG [Suspect]
     Indication: CHRONIC MYELOID LEUKAEMIA
     Route: 048
  2. METOPROLOL (METOPROLOL TARTRATE) [Concomitant]
  3. CELEXA (CITALOPRAM HYDROBROMIDE) [Concomitant]
  4. LASIX (FUROSEMIDE) [Concomitant]
  5. NORVASC (AMLODIPINE BESILATE) [Concomitant]

REACTIONS (5)
  - Carotid artery occlusion [None]
  - Stent placement [None]
  - Transient ischaemic attack [None]
  - Haemorrhage [None]
  - Cerebrovascular accident [None]
